FAERS Safety Report 12242810 (Version 1)
Quarter: 2016Q2

REPORT INFORMATION
  Report Type: Spontaneous
  Country: US (occurrence: US)
  Receive Date: 20160406
  Receipt Date: 20160406
  Transmission Date: 20160815
  Serious: Yes (Other)
  Sender: FDA-Public Use
  Company Number: US-ELI_LILLY_AND_COMPANY-US201604001428

PATIENT
  Sex: Female

DRUGS (1)
  1. CYMBALTA [Suspect]
     Active Substance: DULOXETINE HYDROCHLORIDE
     Indication: PRODUCT USED FOR UNKNOWN INDICATION

REACTIONS (18)
  - Drug withdrawal syndrome [Unknown]
  - Paraesthesia [Unknown]
  - Nightmare [Unknown]
  - Sleep disorder [Unknown]
  - Nausea [Unknown]
  - Tremor [Unknown]
  - Hyperhidrosis [Unknown]
  - Insomnia [Unknown]
  - Arthralgia [Unknown]
  - Mood swings [Unknown]
  - Agitation [Unknown]
  - Dizziness [Unknown]
  - Appetite disorder [Unknown]
  - Irritability [Unknown]
  - Influenza like illness [Unknown]
  - Vertigo [Unknown]
  - Headache [Unknown]
  - Chills [Unknown]
